FAERS Safety Report 6539849-8 (Version None)
Quarter: 2010Q1

REPORT INFORMATION
  Report Type: 
  Country: None (occurrence: None)
  Receive Date: 20100111
  Receipt Date: 20091221
  Transmission Date: 20100710
  Serious: Yes (Other)
  Sender: FDA-Public Use
  Company Number: CIO09022286

PATIENT
  Age: 65 Year
  Sex: Female

DRUGS (1)
  1. DAYQUIL LIQUID, VERSION/FLAVOR UNKNOWN(CHLORPHENAMINE MALEATE UNKNOW U [Suspect]
     Dosage: FOR 2 DAYS, ORAL
     Route: 048
     Dates: start: 20091009, end: 20091010

REACTIONS (2)
  - H1N1 INFLUENZA [None]
  - ROAD TRAFFIC ACCIDENT [None]
